FAERS Safety Report 9744020 (Version 1)
Quarter: 2013Q4

REPORT INFORMATION
  Report Type: Spontaneous
  Country: US (occurrence: US)
  Receive Date: 20131210
  Receipt Date: 20131210
  Transmission Date: 20140711
  Serious: Yes (Hospitalization)
  Sender: FDA-Public Use
  Company Number: US-GLAXOSMITHKLINE-A1051875A

PATIENT
  Sex: Female

DRUGS (4)
  1. AVANDIA [Suspect]
     Indication: TYPE 2 DIABETES MELLITUS
     Route: 048
     Dates: start: 2006, end: 2009
  2. GLIPIZIDE [Concomitant]
  3. COREG [Concomitant]
  4. PLAVIX [Concomitant]

REACTIONS (6)
  - Coronary artery occlusion [Unknown]
  - Cardiac disorder [Unknown]
  - Bradycardia [Unknown]
  - Asthenia [Unknown]
  - Cardiac pacemaker insertion [Unknown]
  - Stent placement [Unknown]
